FAERS Safety Report 4433708-2 (Version None)
Quarter: 2004Q3

REPORT INFORMATION
  Report Type: 
  Country: None (occurrence: None)
  Receive Date: 20040825
  Receipt Date: 20040825
  Transmission Date: 20050211
  Serious: No
  Sender: FDA-Public Use
  Company Number: None

PATIENT
  Sex: Male
  Weight: 41.7309 kg

DRUGS (4)
  1. ATOMOXETINE ELI LILLY [Suspect]
     Indication: ATTENTION DEFICIT/HYPERACTIVITY DISORDER
     Dates: start: 20040101, end: 20040201
  2. CONCERTA [Concomitant]
  3. CARBAMAZEPINE [Concomitant]
  4. DDAVP [Concomitant]

REACTIONS (1)
  - PHYSICAL ABUSE [None]
